FAERS Safety Report 12226333 (Version 5)
Quarter: 2016Q2

REPORT INFORMATION
  Report Type: Report from Study
  Country: US (occurrence: US)
  Receive Date: 20160331
  Receipt Date: 20160628
  Transmission Date: 20160815
  Serious: Yes (Hospitalization)
  Sender: FDA-Public Use
  Company Number: PHHO2016US004667

PATIENT
  Age: 1 Year
  Sex: Male

DRUGS (3)
  1. GSK1120212 [Suspect]
     Active Substance: TRAMETINIB
     Dosage: 0.2 MG, QD
     Route: 048
     Dates: start: 20160322, end: 20160326
  2. GSK1120212 [Suspect]
     Active Substance: TRAMETINIB
     Indication: NEOPLASM MALIGNANT
     Dosage: 0.2 MG, QD
     Route: 048
     Dates: start: 20160309, end: 20160320
  3. GSK1120212 [Suspect]
     Active Substance: TRAMETINIB
     Dosage: 0.15 MG, QD
     Route: 048
     Dates: start: 20160330, end: 20160401

REACTIONS (1)
  - Hyponatraemia [Recovered/Resolved]

NARRATIVE: CASE EVENT DATE: 20160321
